FAERS Safety Report 7758354-4 (Version None)
Quarter: 2011Q3

REPORT INFORMATION
  Report Type: 
  Country: None (occurrence: None)
  Receive Date: 20110825
  Receipt Date: 20110718
  Transmission Date: 20111222
  Serious: Yes (Hospitalization)
  Sender: FDA-Public Use
  Company Number: 332112

PATIENT
  Age: 61 Year
  Sex: Female
  Weight: 74.8 kg

DRUGS (1)
  1. VICTOZA [Suspect]
     Indication: PRODUCT USED FOR UNKNOWN INDICATION
     Dosage: 1.2 MG, QD, SUBCUTANEOUS
     Route: 058
     Dates: start: 20110607, end: 20110718

REACTIONS (1)
  - PANCREATITIS ACUTE [None]
